FAERS Safety Report 15742171 (Version 1)
Quarter: 2018Q4

REPORT INFORMATION
  Report Type: Spontaneous
  Country: US (occurrence: US)
  Receive Date: 20181204
  Receipt Date: 20181204
  Transmission Date: 20190205
  Serious: Yes (Life-Threatening, Hospitalization)
  Sender: FDA-Public Use
  Company Number: None

PATIENT
  Age: 24 Year

DRUGS (1)
  1. CHLOROPROCAINE [Suspect]
     Active Substance: CHLOROPROCAINE
     Indication: CAESAREAN SECTION
     Route: 008

REACTIONS (3)
  - Cerebral artery embolism [None]
  - Cerebrovascular accident [None]
  - Unresponsive to stimuli [None]

NARRATIVE: CASE EVENT DATE: 20181025
